FAERS Safety Report 9463673 (Version 1)
Quarter: 2013Q3

REPORT INFORMATION
  Report Type: Spontaneous
  Country: MX (occurrence: MX)
  Receive Date: 20130819
  Receipt Date: 20130819
  Transmission Date: 20140515
  Serious: Yes (Other)
  Sender: FDA-Public Use
  Company Number: MX-009507513-1308MEX005869

PATIENT
  Sex: Female

DRUGS (1)
  1. IMPLANON [Suspect]
     Indication: CONTRACEPTION
     Dosage: 60-70MCG/DAY,WEEK5-6; 35-45MCG/DAY,1ST YEAR(YR); 30-40MCG/DAY,2ND YR; 25-30MCG/DAY TILL 3RD YR;
     Route: 059

REACTIONS (1)
  - Systemic lupus erythematosus [Unknown]
